FAERS Safety Report 5014013-2 (Version None)
Quarter: 2006Q2

REPORT INFORMATION
  Report Type: 
  Country: None (occurrence: None)
  Receive Date: 20060526
  Receipt Date: 20060526
  Transmission Date: 20061013
  Serious: Yes (Other)
  Sender: FDA-Public Use
  Company Number: None

PATIENT
  Sex: Male
  Weight: 99.7913 kg

DRUGS (3)
  1. OXYCONTIN [Suspect]
     Indication: ABDOMINAL PAIN
     Dates: start: 20031201
  2. OXYCONTIN [Suspect]
     Indication: NEUROPATHY
     Dates: start: 20031201
  3. OXYCONTIN [Suspect]
     Indication: PAIN
     Dates: start: 20031201

REACTIONS (2)
  - DRUG INEFFECTIVE [None]
  - THERAPEUTIC RESPONSE UNEXPECTED WITH DRUG SUBSTITUTION [None]
